FAERS Safety Report 5718023-9 (Version None)
Quarter: 2008Q2

REPORT INFORMATION
  Report Type: 
  Country: None (occurrence: None)
  Receive Date: 20080425
  Receipt Date: 20080425
  Transmission Date: 20081010
  Serious: Yes (Other)
  Sender: FDA-Public Use
  Company Number: B0518276A

PATIENT

DRUGS (1)
  1. AVANDAMET [Suspect]
     Route: 048
     Dates: start: 20040101, end: 20040608

REACTIONS (2)
  - ALANINE AMINOTRANSFERASE INCREASED [None]
  - TYPHOID FEVER [None]
